FAERS Safety Report 22130271 (Version 3)
Quarter: 2023Q2

REPORT INFORMATION
  Report Type: Spontaneous
  Country: US (occurrence: US)
  Receive Date: 20230323
  Receipt Date: 20230620
  Transmission Date: 20230721
  Serious: Yes (Hospitalization, Other)
  Sender: FDA-Public Use
  Company Number: US-BRISTOL-MYERS SQUIBB COMPANY-2023-039026

PATIENT
  Age: 70 Year
  Sex: Male
  Weight: 117 kg

DRUGS (1)
  1. NULOJIX [Suspect]
     Active Substance: BELATACEPT
     Indication: Product used for unknown indication

REACTIONS (1)
  - Gangrene [Unknown]

NARRATIVE: CASE EVENT DATE: 20230313
